FAERS Safety Report 18942514 (Version 1)
Quarter: 2021Q1

REPORT INFORMATION
  Report Type: Other
  Country: FR (occurrence: FR)
  Receive Date: 20210225
  Receipt Date: 20210225
  Transmission Date: 20210420
  Serious: Yes (Other)
  Sender: FDA-Public Use
  Company Number: FR-VERITY PHARMACEUTICALS, INC.-2020VTY00387

PATIENT
  Age: 45 Year
  Sex: Male

DRUGS (6)
  1. OLANZAPINE. [Suspect]
     Active Substance: OLANZAPINE
     Indication: MENTAL DISORDER
     Route: 048
     Dates: start: 201305, end: 201605
  2. TRIPTORELIN PAMOATE [Suspect]
     Active Substance: TRIPTORELIN PAMOATE
     Indication: IMPULSE-CONTROL DISORDER
     Dosage: 1 DF, 4X/DAY
     Route: 030
     Dates: start: 20131001
  3. HALDOL DECANOAS [Suspect]
     Active Substance: HALOPERIDOL DECANOATE
     Indication: MENTAL DISORDER
     Route: 030
     Dates: start: 201010, end: 201810
  4. DEPAMIDE [Suspect]
     Active Substance: VALPROMIDE
     Indication: MENTAL DISORDER
     Route: 048
     Dates: start: 201310, end: 201907
  5. DIPIPERON [Suspect]
     Active Substance: PIPAMPERONE
     Indication: MENTAL DISORDER
     Dosage: UNK
     Route: 048
     Dates: start: 201508
  6. ANDROCUR 50 MG, COMPRESSED [Suspect]
     Active Substance: CYPROTERONE ACETATE
     Indication: IMPULSE-CONTROL DISORDER
     Dosage: 100 MG, 1X/DAY
     Route: 048
     Dates: start: 201311, end: 201907

REACTIONS (2)
  - Meningioma [Not Recovered/Not Resolved]
  - Off label use [Unknown]

NARRATIVE: CASE EVENT DATE: 20131001
